FAERS Safety Report 16973387 (Version 1)
Quarter: 2019Q4

REPORT INFORMATION
  Report Type: Spontaneous
  Country: CA (occurrence: CA)
  Receive Date: 20191030
  Receipt Date: 20191030
  Transmission Date: 20200122
  Serious: Yes (Hospitalization, Other)
  Sender: FDA-Public Use
  Company Number: CA-AUROBINDO-AUR-APL-2019-069853

PATIENT
  Age: 55 Year
  Sex: Female

DRUGS (10)
  1. SUFENTANIL CITRATE. [Suspect]
     Active Substance: SUFENTANIL CITRATE
     Indication: PELVIC PAIN
     Dosage: 0.9 UNK
     Route: 060
  2. HYDROMORPHONE [Suspect]
     Active Substance: HYDROMORPHONE
     Indication: PELVIC PAIN
     Dosage: UNK
     Route: 058
  3. HYDROMORPHONE [Suspect]
     Active Substance: HYDROMORPHONE
     Dosage: 12.5 MILLIGRAM
     Route: 058
  4. METHADONE [Suspect]
     Active Substance: METHADONE HYDROCHLORIDE
     Dosage: 12.0 MILLIGRAM, 3 TIMES A DAY
     Route: 058
  5. SUFENTANIL CITRATE. [Suspect]
     Active Substance: SUFENTANIL CITRATE
     Dosage: 75.0 MICROGRAM
     Route: 060
  6. GABAPENTIN. [Suspect]
     Active Substance: GABAPENTIN
     Indication: PELVIC PAIN
     Dosage: 4.0 MILLIGRAM, 3 TIMES A DAY
     Route: 048
  7. HYDROMORPHONE [Suspect]
     Active Substance: HYDROMORPHONE
     Dosage: 15.0 MILLIGRAM
     Route: 058
  8. METHADONE [Suspect]
     Active Substance: METHADONE HYDROCHLORIDE
     Indication: PELVIC PAIN
     Dosage: 15.0 MILLIGRAM, 3 TIMES A DAY
     Route: 065
  9. KETAMINE HYDROCHLORIDE. [Suspect]
     Active Substance: KETAMINE HYDROCHLORIDE
     Indication: PELVIC PAIN
     Dosage: 500.0 MILLIGRAM, ONCE A DAY
     Route: 058
  10. SUFENTANIL CITRATE. [Suspect]
     Active Substance: SUFENTANIL CITRATE
     Dosage: UNK UNK, 3 TIMES A DAY
     Route: 060

REACTIONS (2)
  - Delirium [Recovering/Resolving]
  - Drug ineffective [Recovering/Resolving]
